FAERS Safety Report 5828305-8 (Version None)
Quarter: 2008Q3

REPORT INFORMATION
  Report Type: 
  Country: None (occurrence: None)
  Receive Date: 20080722
  Receipt Date: 20080709
  Transmission Date: 20090109
  Serious: Yes (Life-Threatening)
  Sender: FDA-Public Use
  Company Number: THYM-1000703

PATIENT
  Age: 45 Year
  Sex: Female
  Weight: 58.5 kg

DRUGS (7)
  1. THYMOGLOBULIN [Suspect]
     Indication: PROPHYLAXIS AGAINST TRANSPLANT REJECTION
     Dosage: 75 MG/DAY, INTRAVENOUS
     Route: 042
     Dates: start: 20080515, end: 20080515
  2. MIDAZOLAM HCL [Suspect]
     Indication: ANAESTHESIA
     Dates: start: 20080515, end: 20080515
  3. FENTANYL CITRATE [Suspect]
     Indication: ANAESTHESIA
     Dates: start: 20080515, end: 20080515
  4. PROPOFOL [Suspect]
     Indication: ANAESTHESIA
     Dates: start: 20080515, end: 20080515
  5. ATRACURIUM BESYLATE [Suspect]
     Indication: ANAESTHESIA
     Dates: start: 20080515, end: 20080515
  6. ROPIVACAINE (ROPIVACAINE) [Suspect]
     Indication: ANAESTHESIA
     Dates: start: 20080515, end: 20080515
  7. ROPIVACAINE (ROPIVACAINE) [Suspect]
     Indication: ANAESTHESIA
     Dates: start: 20080515, end: 20080515

REACTIONS (7)
  - BRADYCARDIA [None]
  - CARDIO-RESPIRATORY ARREST [None]
  - CONVULSION [None]
  - DEPRESSED LEVEL OF CONSCIOUSNESS [None]
  - TACHYARRHYTHMIA [None]
  - VENTRICULAR FIBRILLATION [None]
  - VENTRICULAR TACHYCARDIA [None]
